FAERS Safety Report 21314018 (Version 1)
Quarter: 2022Q3

REPORT INFORMATION
  Report Type: Spontaneous
  Country: TW (occurrence: TW)
  Receive Date: 20220909
  Receipt Date: 20220909
  Transmission Date: 20221026
  Serious: Yes (Hospitalization)
  Sender: FDA-Public Use
  Company Number: TW-ABBVIE-22K-153-4533260-00

PATIENT
  Age: 79 Year
  Sex: Male

DRUGS (6)
  1. VENETOCLAX [Suspect]
     Active Substance: VENETOCLAX
     Indication: Acute myeloid leukaemia
     Dosage: DAY1
     Route: 048
     Dates: start: 20220217, end: 20220217
  2. VENETOCLAX [Suspect]
     Active Substance: VENETOCLAX
     Dosage: DAY2
     Route: 048
     Dates: start: 20220218, end: 20220218
  3. VENETOCLAX [Suspect]
     Active Substance: VENETOCLAX
     Dosage: SINCE DAY3
     Route: 048
     Dates: start: 20220219
  4. CYTARABINE [Concomitant]
     Active Substance: CYTARABINE
     Indication: Acute myeloid leukaemia
     Route: 058
     Dates: start: 20220217, end: 20220226
  5. CYTARABINE [Concomitant]
     Active Substance: CYTARABINE
     Route: 058
     Dates: start: 20220325, end: 20220403
  6. ALLOPURINOL [Concomitant]
     Active Substance: ALLOPURINOL
     Indication: Prophylaxis
     Dates: start: 20220217

REACTIONS (5)
  - Cytopenia [Unknown]
  - Escherichia infection [Unknown]
  - Tumour lysis syndrome [Unknown]
  - Haemorrhage [Unknown]
  - Blood creatinine abnormal [Unknown]

NARRATIVE: CASE EVENT DATE: 20220101
